FAERS Safety Report 18050172 (Version 2)
Quarter: 2020Q4

REPORT INFORMATION
  Report Type: Spontaneous
  Country: US (occurrence: US)
  Receive Date: 20200721
  Receipt Date: 20201026
  Transmission Date: 20210113
  Serious: No
  Sender: FDA-Public Use
  Company Number: US-LEXICON PHARMACEUTICALS, INC-20-1606-00542

PATIENT
  Age: 71 Year
  Sex: Male

DRUGS (23)
  1. OPIUM TINCTURE [Concomitant]
     Active Substance: MORPHINE
  2. AMLODIPINE BESYLATE. [Concomitant]
     Active Substance: AMLODIPINE BESYLATE
  3. ALLOPURINOL. [Concomitant]
     Active Substance: ALLOPURINOL
  4. EFFERVESCENT POTASSIUM [Concomitant]
  5. GABAPENTIN. [Concomitant]
     Active Substance: GABAPENTIN
  6. INDOMETHACIN. [Concomitant]
     Active Substance: INDOMETHACIN
  7. XERMELO [Suspect]
     Active Substance: TELOTRISTAT ETHYL
     Indication: CARCINOID TUMOUR
     Dosage: 1 OR 2 TIMES A DAY SOMETIMES DEPENDING ON HOW HE IS FEELING
  8. ASPIRIN. [Concomitant]
     Active Substance: ASPIRIN
  9. SERTRALINE HCL [Concomitant]
     Active Substance: SERTRALINE HYDROCHLORIDE
  10. XERMELO [Suspect]
     Active Substance: TELOTRISTAT ETHYL
     Indication: CARCINOID SYNDROME
     Dates: start: 20171005
  11. VITAMIN B12 [Concomitant]
     Active Substance: CYANOCOBALAMIN
  12. VOLTAREN [Concomitant]
     Active Substance: DICLOFENAC SODIUM
  13. MAGNESIUM [Concomitant]
     Active Substance: MAGNESIUM
  14. ROPINIROLE HCL [Concomitant]
     Active Substance: ROPINIROLE HYDROCHLORIDE
  15. OMEPRAZOLE. [Concomitant]
     Active Substance: OMEPRAZOLE
  16. NIACIN. [Concomitant]
     Active Substance: NIACIN
  17. MAGNESIUM OXIDE. [Concomitant]
     Active Substance: MAGNESIUM OXIDE
  18. ASPIR-LOW [Concomitant]
     Active Substance: ASPIRIN
  19. SANDOSTATIN [Concomitant]
     Active Substance: OCTREOTIDE ACETATE
  20. PREDNISOLONE. [Concomitant]
     Active Substance: PREDNISOLONE
  21. METOPROLOL SUCCINATE ER [Concomitant]
     Active Substance: METOPROLOL SUCCINATE
  22. PAROXETINE HCL [Concomitant]
     Active Substance: PAROXETINE HYDROCHLORIDE
  23. KLOR-CON [Concomitant]
     Active Substance: POTASSIUM CHLORIDE

REACTIONS (11)
  - Anorectal discomfort [Unknown]
  - Diarrhoea [Not Recovered/Not Resolved]
  - Fatigue [Unknown]
  - Dyschezia [Unknown]
  - Abdominal distension [Unknown]
  - Hypophagia [Unknown]
  - Abdominal distension [Not Recovered/Not Resolved]
  - Food intolerance [Unknown]
  - Flatulence [Unknown]
  - Anaemia [Unknown]
  - Muscle twitching [Unknown]
